FAERS Safety Report 8553189-7 (Version None)
Quarter: 2012Q3

REPORT INFORMATION
  Report Type: 
  Country: None (occurrence: None)
  Receive Date: 20120725
  Receipt Date: 20120725
  Transmission Date: 20120928
  Serious: Yes (Hospitalization)
  Sender: FDA-Public Use
  Company Number: None

PATIENT
  Age: 70 Year
  Sex: Female
  Weight: 88 kg

DRUGS (11)
  1. LEVOXYL [Concomitant]
  2. HYDRALAZINE HCL [Concomitant]
  3. VERAPAMIL [Concomitant]
  4. METFORMIN HYDROCHLORIDE [Concomitant]
  5. EVEROLIMUS [Suspect]
     Dosage: 10 MG QD
     Dates: start: 20120411, end: 20120606
  6. POTASSIUM CHLORIDE [Concomitant]
  7. LASIX [Concomitant]
  8. PASIREOTIDE [Suspect]
     Indication: THYROID CANCER
     Dosage: 60 MG QD
     Dates: start: 20101208, end: 20120606
  9. DIOVAN [Concomitant]
  10. ADVAIR DISKUS 100/50 [Concomitant]
  11. NASAL ATROVENT [Concomitant]

REACTIONS (3)
  - DIABETIC KETOACIDOSIS [None]
  - ANAEMIA [None]
  - DYSPNOEA [None]
